FAERS Safety Report 12245994 (Version 1)
Quarter: 2016Q2

REPORT INFORMATION
  Report Type: Spontaneous
  Country: HR (occurrence: HR)
  Receive Date: 20160407
  Receipt Date: 20160407
  Transmission Date: 20160815
  Serious: Yes (Hospitalization, Other)
  Sender: FDA-Public Use
  Company Number: HR-009507513-1603HRV013834

PATIENT
  Age: 55 Year
  Sex: Male

DRUGS (4)
  1. EMANERA [Concomitant]
     Indication: ESSENTIAL HYPERTENSION
     Dosage: 0+0+1
     Route: 048
  2. INEGY [Suspect]
     Active Substance: EZETIMIBE\SIMVASTATIN
     Indication: HYPERLIPIDAEMIA
     Dosage: 0+1+0
     Route: 048
  3. FENOFIBRATE. [Suspect]
     Active Substance: FENOFIBRATE
     Indication: HYPERLIPIDAEMIA
     Dosage: 0+1+0
     Route: 048
  4. FLOSIN (TAMSULOSIN HYDROCHLORIDE) [Concomitant]
     Dosage: 1+0+0
     Route: 048

REACTIONS (3)
  - Alanine aminotransferase increased [Not Recovered/Not Resolved]
  - Pulmonary embolism [Recovering/Resolving]
  - Aspartate aminotransferase increased [Not Recovered/Not Resolved]

NARRATIVE: CASE EVENT DATE: 20160110
